FAERS Safety Report 7451117-9 (Version None)
Quarter: 2011Q2

REPORT INFORMATION
  Report Type: 
  Country: None (occurrence: None)
  Receive Date: 20110422
  Receipt Date: 20110408
  Transmission Date: 20111010
  Serious: Yes (Other)
  Sender: FDA-Public Use
  Company Number: 20110289

PATIENT
  Sex: Female

DRUGS (1)
  1. DEXAMETHASONE SODIUM PHOSPHATE [Suspect]
     Indication: ARTHROPATHY
     Dosage: INTRA-ARTICULAR
     Route: 014

REACTIONS (7)
  - WHEELCHAIR USER [None]
  - UNEVALUABLE EVENT [None]
  - PRODUCT QUALITY ISSUE [None]
  - ABASIA [None]
  - MUSCLE SPASMS [None]
  - PAIN IN EXTREMITY [None]
  - INSOMNIA [None]
